FAERS Safety Report 8544195-7 (Version None)
Quarter: 2012Q3

REPORT INFORMATION
  Report Type: 
  Country: None (occurrence: None)
  Receive Date: 20120727
  Receipt Date: 20120724
  Transmission Date: 20120928
  Serious: Yes (Other)
  Sender: FDA-Public Use
  Company Number: PHEH2012US006246

PATIENT
  Sex: Male
  Weight: 60.771 kg

DRUGS (1)
  1. GILENYA [Suspect]
     Indication: MULTIPLE SCLEROSIS
     Dosage: 0.5 MG, QD
     Route: 048
     Dates: start: 20110830, end: 20120630

REACTIONS (5)
  - HEPATIC ENZYME INCREASED [None]
  - ALANINE AMINOTRANSFERASE INCREASED [None]
  - LIPASE INCREASED [None]
  - PANCREATIC ENZYMES INCREASED [None]
  - ALPHA 1 FOETOPROTEIN INCREASED [None]
